FAERS Safety Report 19708455 (Version 3)
Quarter: 2021Q4

REPORT INFORMATION
  Report Type: Spontaneous
  Country: JP (occurrence: JP)
  Receive Date: 20210817
  Receipt Date: 20211124
  Transmission Date: 20220303
  Serious: Yes (Hospitalization, Other)
  Sender: FDA-Public Use
  Company Number: JP-PFIZER INC-202100999801

PATIENT
  Age: 81 Year
  Sex: Male

DRUGS (1)
  1. VYNDAQEL [Suspect]
     Active Substance: TAFAMIDIS MEGLUMINE
     Indication: Cardiac amyloidosis
     Dosage: 80 MG, DAILY
     Route: 048
     Dates: start: 2021

REACTIONS (4)
  - Bradyarrhythmia [Unknown]
  - Syncope [Unknown]
  - Sinus arrest [Unknown]
  - Cardiac failure chronic [Unknown]
